FAERS Safety Report 6611963-8 (Version None)
Quarter: 2010Q1

REPORT INFORMATION
  Report Type: 
  Country: None (occurrence: None)
  Receive Date: 20100302
  Receipt Date: 20100302
  Transmission Date: 20100710
  Serious: Yes (Hospitalization)
  Sender: FDA-Public Use
  Company Number: None

PATIENT
  Sex: Female
  Weight: 40.9 kg

DRUGS (2)
  1. TOPOTECAN [Suspect]
     Dosage: 3.06 MG
     Dates: end: 20100203
  2. TAXOL [Suspect]
     Dosage: 238 MG
     Dates: end: 20100201

REACTIONS (9)
  - ABDOMINAL PAIN [None]
  - CONSTIPATION [None]
  - FISTULA [None]
  - HYDRONEPHROSIS [None]
  - HYDROURETER [None]
  - INTESTINAL OBSTRUCTION [None]
  - MEDICAL DEVICE COMPLICATION [None]
  - NECROSIS [None]
  - UTERINE MASS [None]
